FAERS Safety Report 6741108-5 (Version None)
Quarter: 2010Q2

REPORT INFORMATION
  Report Type: 
  Country: None (occurrence: None)
  Receive Date: 20100526
  Receipt Date: 20100519
  Transmission Date: 20101027
  Serious: Yes (Death)
  Sender: FDA-Public Use
  Company Number: US-JNJFOC-20090401280

PATIENT
  Sex: Male
  Weight: 102.51 kg

DRUGS (8)
  1. FENTANYL [Suspect]
     Indication: PAIN
     Route: 062
  2. MEPROBAMATE [Concomitant]
  3. CARISOPRODOL [Concomitant]
  4. ALPRAZOLAM [Concomitant]
  5. PROMETHAZINE [Concomitant]
     Dosage: ONE EVERY 4-6 HOURS
  6. ATENOLOL [Concomitant]
  7. AMITRIPTYLINE [Concomitant]
  8. ACETAMINOPHEN [Concomitant]

REACTIONS (2)
  - DRUG TOXICITY [None]
  - WRONG TECHNIQUE IN DRUG USAGE PROCESS [None]
